FAERS Safety Report 8022968-7 (Version None)
Quarter: 2012Q1

REPORT INFORMATION
  Report Type: 
  Country: None (occurrence: None)
  Receive Date: 20120104
  Receipt Date: 20111227
  Transmission Date: 20120608
  Serious: Yes (Hospitalization)
  Sender: FDA-Public Use
  Company Number: JP-ABBOTT-11P-087-0886817-00

PATIENT
  Sex: Male
  Weight: 66 kg

DRUGS (15)
  1. HERBAL MEDICINE (HOCHUEKKITO) [Concomitant]
     Indication: PRODUCT USED FOR UNKNOWN INDICATION
     Route: 048
     Dates: start: 20110624
  2. DAIKENCHUTO [Concomitant]
     Indication: CROHN'S DISEASE
     Route: 048
  3. OMEPRAZOLE [Concomitant]
     Indication: CROHN'S DISEASE
     Route: 048
  4. LIDOCAINE/ETHYL AMINOBENZOATE/BISMUTH SUBGALLATE [Concomitant]
     Indication: CROHN'S DISEASE
     Route: 054
     Dates: end: 20110624
  5. HUMIRA [Suspect]
     Dates: start: 20110415, end: 20110415
  6. HUMIRA [Suspect]
     Dates: start: 20110428, end: 20110624
  7. ELENTAL [Suspect]
     Indication: CROHN'S DISEASE
  8. CLOSTRIDIUM BUTYRICUM [Concomitant]
     Indication: CROHN'S DISEASE
     Route: 048
  9. COLIBACILLUS VACCINE/HYDROCORTISONE [Concomitant]
     Indication: CROHN'S DISEASE
     Route: 061
     Dates: end: 20110624
  10. AZATHIOPRINE SODIUM [Suspect]
     Indication: CROHN'S DISEASE
     Route: 048
     Dates: end: 20110704
  11. ISONIAZID [Concomitant]
     Indication: ANTIBIOTIC PROPHYLAXIS
     Route: 048
     Dates: start: 20100810, end: 20110708
  12. MESALAMINE [Concomitant]
     Indication: CROHN'S DISEASE
     Route: 048
  13. PYRIDOXAL PHOSPHATE HYDRATE [Concomitant]
     Indication: PROPHYLAXIS
     Dates: end: 20110708
  14. HUMIRA [Suspect]
     Indication: CROHN'S DISEASE
     Route: 058
     Dates: start: 20110401, end: 20110401
  15. HUMIRA [Suspect]
     Dates: start: 20110826

REACTIONS (9)
  - VITAMIN K DEFICIENCY [None]
  - HAEMORRHAGIC ANAEMIA [None]
  - URTICARIA [None]
  - HAEMORRHAGIC DIATHESIS [None]
  - INJECTION SITE REACTION [None]
  - WHITE BLOOD CELL COUNT DECREASED [None]
  - GASTROINTESTINAL HAEMORRHAGE [None]
  - DIARRHOEA [None]
  - VIRAL INFECTION [None]
